FAERS Safety Report 19727762 (Version 1)
Quarter: 2021Q3

REPORT INFORMATION
  Report Type: Spontaneous
  Country: CA (occurrence: CA)
  Receive Date: 20210819
  Receipt Date: 20210819
  Transmission Date: 20211014
  Serious: Yes (Other)
  Sender: FDA-Public Use
  Company Number: CA-JNJFOC-20210826880

PATIENT
  Age: 20 Year
  Sex: Female
  Weight: 51 kg

DRUGS (6)
  1. MESALAZINE [Concomitant]
     Active Substance: MESALAMINE
  2. PENTASA [Concomitant]
     Active Substance: MESALAMINE
  3. PREDNISONE. [Concomitant]
     Active Substance: PREDNISONE
     Route: 048
  4. REMICADE [Suspect]
     Active Substance: INFLIXIMAB
     Indication: COLITIS ULCERATIVE
     Route: 042
  5. PENTASA [Concomitant]
     Active Substance: MESALAMINE
     Route: 048
  6. PENTASA [Concomitant]
     Active Substance: MESALAMINE
     Route: 048

REACTIONS (6)
  - Off label use [Not Recovered/Not Resolved]
  - Condition aggravated [Not Recovered/Not Resolved]
  - Product dose omission issue [Not Recovered/Not Resolved]
  - Drug level increased [Not Recovered/Not Resolved]
  - Neutropenia [Not Recovered/Not Resolved]
  - Alopecia [Not Recovered/Not Resolved]
